FAERS Safety Report 6292715-8 (Version None)
Quarter: 2009Q3

REPORT INFORMATION
  Report Type: 
  Country: None (occurrence: None)
  Receive Date: 20090731
  Receipt Date: 20090724
  Transmission Date: 20100115
  Serious: Yes (Other)
  Sender: FDA-Public Use
  Company Number: A0799146A

PATIENT
  Age: 35 Year
  Sex: Female

DRUGS (2)
  1. ARIXTRA [Suspect]
     Indication: FACTOR V LEIDEN MUTATION
     Route: 042
     Dates: end: 20090601
  2. LOVENOX [Suspect]
     Indication: FACTOR V LEIDEN MUTATION
     Dosage: 100MG PER DAY
     Route: 042
     Dates: end: 20090601

REACTIONS (2)
  - ABORTION SPONTANEOUS [None]
  - DRUG EXPOSURE DURING PREGNANCY [None]
